FAERS Safety Report 5402488-6 (Version None)
Quarter: 2007Q3

REPORT INFORMATION
  Report Type: 
  Country: None (occurrence: None)
  Receive Date: 20070801
  Receipt Date: 20060817
  Transmission Date: 20080115
  Serious: Yes (Hospitalization)
  Sender: FDA-Public Use
  Company Number: A0612989A

PATIENT
  Age: 50 Year
  Sex: Male
  Weight: 85 kg

DRUGS (5)
  1. IMITREX [Suspect]
     Indication: MIGRAINE
     Dosage: 100MG AS REQUIRED
     Route: 048
     Dates: start: 20060717
  2. IMITREX [Suspect]
     Dosage: 6MG SINGLE DOSE
     Route: 042
     Dates: start: 20060714, end: 20060714
  3. REGLAN [Concomitant]
     Dosage: 10MG THREE TIMES PER DAY
     Route: 048
     Dates: start: 20060714
  4. CELEBREX [Concomitant]
     Dosage: 200MG PER DAY
     Route: 048
     Dates: start: 20060518
  5. LAMICTAL [Concomitant]
     Dosage: 100MG TWICE PER DAY
     Route: 048
     Dates: start: 20060518

REACTIONS (3)
  - CHEST DISCOMFORT [None]
  - HYPOAESTHESIA [None]
  - HYPOAESTHESIA ORAL [None]
